FAERS Safety Report 20109654 (Version 1)
Quarter: 2021Q4

REPORT INFORMATION
  Report Type: Spontaneous
  Country: US (occurrence: None)
  Receive Date: 20211124
  Receipt Date: 20211124
  Transmission Date: 20220303
  Serious: No
  Sender: FDA-Public Use
  Company Number: None

PATIENT
  Age: 59 Year
  Sex: Female

DRUGS (1)
  1. MITCHUM ROLL ON [Suspect]
     Active Substance: ALUMINUM ZIRCONIUM TETRACHLOROHYDREX GLY
     Indication: Personal hygiene
     Dates: start: 20211110

REACTIONS (3)
  - Headache [None]
  - Nausea [None]
  - Product odour abnormal [None]

NARRATIVE: CASE EVENT DATE: 20211110
